FAERS Safety Report 5501785-3 (Version None)
Quarter: 2007Q4

REPORT INFORMATION
  Report Type: 
  Country: None (occurrence: None)
  Receive Date: 20071018
  Receipt Date: 20070502
  Transmission Date: 20080405
  Serious: Yes (Other)
  Sender: FDA-Public Use
  Company Number: 2007035961

PATIENT
  Age: 79 Year
  Sex: Male

DRUGS (2)
  1. NEURONTIN [Suspect]
     Indication: NEUROPATHY PERIPHERAL
     Dosage: 300 MG
     Dates: start: 19980101
  2. NEURONTIN [Suspect]
     Indication: SURGERY
     Dosage: 300 MG
     Dates: start: 19980101

REACTIONS (3)
  - AMNESIA [None]
  - DIABETES MELLITUS [None]
  - URINARY INCONTINENCE [None]
